FAERS Safety Report 24409371 (Version 1)
Quarter: 2024Q4

REPORT INFORMATION
  Report Type: Spontaneous
  Country: CZ (occurrence: CZ)
  Receive Date: 20241008
  Receipt Date: 20241008
  Transmission Date: 20250114
  Serious: Yes (Hospitalization)
  Sender: ROCHE
  Company Number: None

PATIENT
  Age: 84 Year
  Sex: Female
  Weight: 54 kg

DRUGS (1)
  1. VABYSMO [Suspect]
     Active Substance: FARICIMAB-SVOA
     Indication: Neovascular age-related macular degeneration
     Dosage: ADMINISTRATION IN THE RIGHT EYE
     Route: 031
     Dates: start: 20231114, end: 20240812

REACTIONS (6)
  - Vision blurred [Recovering/Resolving]
  - Keratic precipitates [Unknown]
  - Eye pain [Recovered/Resolved]
  - Corneal oedema [Unknown]
  - Vision blurred [Recovering/Resolving]
  - Posterior capsule opacification [Unknown]

NARRATIVE: CASE EVENT DATE: 20240801
